FAERS Safety Report 4548008-X (Version None)
Quarter: 2004Q4

REPORT INFORMATION
  Report Type: 
  Country: None (occurrence: None)
  Receive Date: 20041220
  Receipt Date: 20040701
  Transmission Date: 20050328
  Serious: Yes (Hospitalization)
  Sender: FDA-Public Use
  Company Number: USA040771526

PATIENT
  Age: 53 Year
  Sex: Female
  Weight: 90 kg

DRUGS (3)
  1. HUMULIN R [Suspect]
     Indication: DIABETES MELLITUS
     Dates: start: 19870101
  2. HUMALOG [Suspect]
     Indication: DIABETES MELLITUS
     Dates: start: 20020301, end: 20020401
  3. LANTUS [Concomitant]

REACTIONS (4)
  - BLOOD GLUCOSE INCREASED [None]
  - DRUG INTOLERANCE [None]
  - INFLUENZA [None]
  - NASOPHARYNGITIS [None]
